FAERS Safety Report 22322702 (Version 1)
Quarter: 2023Q2

REPORT INFORMATION
  Report Type: Spontaneous
  Country: US (occurrence: None)
  Receive Date: 20230516
  Receipt Date: 20230516
  Transmission Date: 20230721
  Serious: No
  Sender: FDA-Public Use
  Company Number: US-Axsome Therapeutics, Inc.-AXS202302-000210

PATIENT
  Age: 36 Year
  Sex: Female

DRUGS (1)
  1. SUNOSI [Suspect]
     Active Substance: SOLRIAMFETOL
     Indication: Product used for unknown indication
     Route: 048
     Dates: start: 202009, end: 20221103

REACTIONS (5)
  - Loss of personal independence in daily activities [Unknown]
  - Somnolence [Unknown]
  - Migraine [Unknown]
  - Sleep disorder [Unknown]
  - Product use issue [Unknown]

NARRATIVE: CASE EVENT DATE: 20221103
